FAERS Safety Report 5510425-9 (Version None)
Quarter: 2007Q4

REPORT INFORMATION
  Report Type: 
  Country: None (occurrence: None)
  Receive Date: 20071108
  Receipt Date: 20071030
  Transmission Date: 20080405
  Serious: Yes (Other)
  Sender: FDA-Public Use
  Company Number: US-GENENTECH-250521

PATIENT
  Sex: Male
  Weight: 25.5 kg

DRUGS (1)
  1. SOMATROPIN [Suspect]
     Indication: GROWTH RETARDATION
     Dosage: 1.1 MG, 7/WEEK
     Dates: start: 20060913, end: 20071026

REACTIONS (2)
  - EPIPHYSIOLYSIS [None]
  - OSTEONECROSIS [None]
